FAERS Safety Report 9441542 (Version 1)
Quarter: 2013Q3

REPORT INFORMATION
  Report Type: Spontaneous
  Country: CL (occurrence: CL)
  Receive Date: 20130805
  Receipt Date: 20130805
  Transmission Date: 20140515
  Serious: Yes (Other)
  Sender: FDA-Public Use
  Company Number: CL-ROXANE LABORATORIES, INC.-2013-RO-01270RO

PATIENT
  Age: 2 Month
  Sex: Male

DRUGS (1)
  1. PROPRANOLOL [Suspect]
     Indication: HAEMANGIOMA CONGENITAL
     Route: 048

REACTIONS (1)
  - Hyperhidrosis [Recovered/Resolved]
